FAERS Safety Report 14025449 (Version 1)
Quarter: 2017Q3

REPORT INFORMATION
  Report Type: Report from Study
  Country: US (occurrence: US)
  Receive Date: 20170929
  Receipt Date: 20170929
  Transmission Date: 20171128
  Serious: No
  Sender: FDA-Public Use
  Company Number: PHHY2017US057641

PATIENT
  Age: 60 Year
  Sex: Male

DRUGS (1)
  1. GILENYA [Suspect]
     Active Substance: FINGOLIMOD HYDROCHLORIDE
     Indication: MULTIPLE SCLEROSIS
     Dosage: UNK, QD
     Route: 048

REACTIONS (5)
  - Blood cholesterol increased [Unknown]
  - Musculoskeletal chest pain [Recovered/Resolved]
  - Anal incontinence [Recovered/Resolved]
  - Low density lipoprotein increased [Unknown]
  - Polycythaemia [Unknown]

NARRATIVE: CASE EVENT DATE: 20160620
